FAERS Safety Report 18087212 (Version 1)
Quarter: 2020Q3

REPORT INFORMATION
  Report Type: Spontaneous
  Country: US (occurrence: US)
  Receive Date: 20200729
  Receipt Date: 20200729
  Transmission Date: 20201103
  Serious: Yes (Hospitalization)
  Sender: FDA-Public Use
  Company Number: None

PATIENT
  Age: 25 Year
  Sex: Female
  Weight: 110 kg

DRUGS (1)
  1. CISPLATIN (119875) [Suspect]
     Active Substance: CISPLATIN
     Dates: end: 20200707

REACTIONS (5)
  - Hypocalcaemia [None]
  - Hypomagnesaemia [None]
  - Fanconi syndrome [None]
  - Pulmonary embolism [None]
  - Muscle spasms [None]

NARRATIVE: CASE EVENT DATE: 20200726
